FAERS Safety Report 7002524-X (Version None)
Quarter: 2010Q3

REPORT INFORMATION
  Report Type: 
  Country: None (occurrence: None)
  Receive Date: 20100920
  Receipt Date: 20100125
  Transmission Date: 20110219
  Serious: No
  Sender: FDA-Public Use
  Company Number: US-ASTRAZENECA-2010SE03384

PATIENT
  Age: 33944 Day
  Sex: Male
  Weight: 59.9 kg

DRUGS (9)
  1. SEROQUEL [Suspect]
     Indication: MOOD SWINGS
     Dosage: TWICE A DAY
     Route: 048
     Dates: start: 20100123
  2. SEROQUEL [Suspect]
     Indication: ANGER
     Dosage: TWICE A DAY
     Route: 048
     Dates: start: 20100123
  3. AMLODIPINE [Concomitant]
  4. GLIPIZIDE [Concomitant]
  5. FINASTERIDE [Concomitant]
  6. ASPIRIN [Concomitant]
  7. MULTI-VITAMIN [Concomitant]
  8. TRAMADOL [Concomitant]
  9. ATIVAN [Concomitant]

REACTIONS (3)
  - AGITATION [None]
  - DRUG EFFECT DECREASED [None]
  - FATIGUE [None]
